FAERS Safety Report 18226674 (Version 1)
Quarter: 2020Q3

REPORT INFORMATION
  Report Type: Spontaneous
  Country: US (occurrence: US)
  Receive Date: 20200903
  Receipt Date: 20200903
  Transmission Date: 20201103
  Serious: No
  Sender: FDA-Public Use
  Company Number: US-BAYER-2020-184559

PATIENT
  Sex: Female

DRUGS (2)
  1. TYLENOL [Concomitant]
     Active Substance: ACETAMINOPHEN
  2. CLARITIN [Suspect]
     Active Substance: LORATADINE
     Dosage: 2.5 DF
     Route: 048

REACTIONS (1)
  - Burn oesophageal [Recovered/Resolved]
